FAERS Safety Report 24319402 (Version 1)
Quarter: 2024Q3

REPORT INFORMATION
  Report Type: Other
  Country: FR (occurrence: FR)
  Receive Date: 20240914
  Receipt Date: 20240914
  Transmission Date: 20241016
  Serious: Yes (Hospitalization)
  Sender: ZYDUS PHARM
  Company Number: None

PATIENT

DRUGS (3)
  1. ACETAMINOPHEN [Suspect]
     Active Substance: ACETAMINOPHEN
     Indication: Groin pain
     Dosage: UNK
     Route: 048
     Dates: start: 20240418, end: 20240418
  2. OFLOXACIN [Suspect]
     Active Substance: OFLOXACIN
     Indication: Groin pain
     Dosage: UNK
     Route: 048
     Dates: start: 20240415, end: 20240415
  3. PHLOROGLUCINOL\1,3,5-TRIMETHOXYBENZENE [Suspect]
     Active Substance: PHLOROGLUCINOL\1,3,5-TRIMETHOXYBENZENE
     Indication: Groin pain
     Dosage: UNK
     Route: 048
     Dates: start: 20240418, end: 20240418

REACTIONS (1)
  - Anaphylactic shock [Recovered/Resolved]

NARRATIVE: CASE EVENT DATE: 20240418
